FAERS Safety Report 23226176 (Version 1)
Quarter: 2023Q4

REPORT INFORMATION
  Report Type: Spontaneous
  Country: US (occurrence: US)
  Receive Date: 20231124
  Receipt Date: 20231124
  Transmission Date: 20240109
  Serious: Yes (Other)
  Sender: FDA-Public Use
  Company Number: US-002147023-NVSC2023US250178

PATIENT
  Sex: Female

DRUGS (3)
  1. PIQRAY [Suspect]
     Active Substance: ALPELISIB
     Indication: Product used for unknown indication
     Dosage: UNK
     Route: 065
  2. LENVIMA [Suspect]
     Active Substance: LENVATINIB
     Indication: Endometrial neoplasm
     Dosage: 20 MG, QD (2X 10MG) 5 DAY PK-COMM)
     Route: 048
  3. GARLIC [Concomitant]
     Active Substance: GARLIC
     Indication: Blood pressure fluctuation
     Dosage: 200 MG (SUPPLIMENT IN THE MORNING)
     Route: 065

REACTIONS (2)
  - Neuropathy peripheral [Unknown]
  - Blood glucose increased [Unknown]
